FAERS Safety Report 19677810 (Version 2)
Quarter: 2021Q3

REPORT INFORMATION
  Report Type: Report from Study
  Country: CO (occurrence: CO)
  Receive Date: 20210810
  Receipt Date: 20210830
  Transmission Date: 20211014
  Serious: Yes (Other)
  Sender: FDA-Public Use
  Company Number: CO-BRISTOL-MYERS SQUIBB COMPANY-BMS-2021-041903

PATIENT
  Age: 77 Year
  Sex: Male
  Weight: 55 kg

DRUGS (3)
  1. ENEMA [SODIUM CHLORIDE] [Concomitant]
     Indication: CONSTIPATION
     Dosage: UNK
     Route: 054
  2. YERVOY [Suspect]
     Active Substance: IPILIMUMAB
     Indication: MALIGNANT MELANOMA
     Dosage: 150 MILLIGRAM, EVERY 30 DAYSUNK
     Route: 042
     Dates: start: 20210602
  3. NIVOLUMAB [Suspect]
     Active Substance: NIVOLUMAB
     Indication: MALIGNANT MELANOMA
     Dosage: 50 MILLIGRAM EVERY 30 DAYS
     Route: 065
     Dates: start: 20210602

REACTIONS (8)
  - Constipation [Recovering/Resolving]
  - Intentional product use issue [Unknown]
  - Skin lesion [Recovering/Resolving]
  - Pain [Unknown]
  - Haemorrhagic stroke [Recovered/Resolved with Sequelae]
  - Headache [Recovering/Resolving]
  - Pain in extremity [Recovering/Resolving]
  - Vomiting [Recovering/Resolving]

NARRATIVE: CASE EVENT DATE: 20210628
